FAERS Safety Report 4434074-9 (Version None)
Quarter: 2004Q3

REPORT INFORMATION
  Report Type: 
  Country: None (occurrence: None)
  Receive Date: 20040825
  Receipt Date: 20040811
  Transmission Date: 20050211
  Serious: Yes (Other)
  Sender: FDA-Public Use
  Company Number: 202864

PATIENT
  Age: 63 Year
  Sex: Female
  Weight: 46.2669 kg

DRUGS (8)
  1. AVONEX [Suspect]
     Indication: MULTIPLE SCLEROSIS
     Dosage: 30 MCG QW IM
     Dates: start: 19990101
  2. AVONEX [Suspect]
     Indication: MULTIPLE SCLEROSIS
     Dosage: 30 MCG QW IM
  3. CLONAZEPAM [Concomitant]
  4. PAXIL [Concomitant]
  5. PREMPRO [Concomitant]
  6. HORMONE REPLACEMENT (NOS) [Concomitant]
  7. VITAMIN [Concomitant]
  8. GRAPE SEED EXTRACT [Concomitant]

REACTIONS (5)
  - BREAST CANCER FEMALE [None]
  - FALL [None]
  - FIBROCYSTIC BREAST DISEASE [None]
  - HYPERAESTHESIA [None]
  - PROGRESSIVE MULTIPLE SCLEROSIS [None]
